FAERS Safety Report 5822514-X (Version None)
Quarter: 2008Q3

REPORT INFORMATION
  Report Type: 
  Country: None (occurrence: None)
  Receive Date: 20080725
  Receipt Date: 20071216
  Transmission Date: 20090109
  Serious: No
  Sender: FDA-Public Use
  Company Number: US-AMGEN-KDL257019

PATIENT
  Sex: Female

DRUGS (18)
  1. EPOGEN [Suspect]
     Indication: ANAEMIA
     Dates: start: 20050101
  2. KEFLEX [Concomitant]
  3. LIPITOR [Concomitant]
  4. SODIUM BICARBONATE [Concomitant]
  5. ACTOS [Concomitant]
  6. ALTACE [Concomitant]
  7. PHOSLO [Concomitant]
  8. OXYBUTYNIN [Concomitant]
  9. DOCUSATE [Concomitant]
  10. ALLOPURINOL [Concomitant]
  11. CATAPRES [Concomitant]
  12. CHROMAGEN FORTE [Concomitant]
  13. SYNTHROID [Concomitant]
  14. DIATX [Concomitant]
  15. MICARDIS [Concomitant]
  16. VASOTEC [Concomitant]
  17. ASPIRIN [Concomitant]
  18. FISH OIL [Concomitant]

REACTIONS (2)
  - INFLUENZA [None]
  - URTICARIA [None]
